FAERS Safety Report 25341384 (Version 1)
Quarter: 2025Q2

REPORT INFORMATION
  Report Type: Spontaneous
  Country: FR (occurrence: FR)
  Receive Date: 20250521
  Receipt Date: 20250521
  Transmission Date: 20250716
  Serious: Yes (Life-Threatening, Hospitalization, Other)
  Sender: MYLAN
  Company Number: FR-MYLANLABS-2025M1042032

PATIENT
  Age: 71 Year
  Sex: Male

DRUGS (16)
  1. DOCETAXEL [Suspect]
     Active Substance: DOCETAXEL
     Indication: Prostate cancer metastatic
  2. DOCETAXEL [Suspect]
     Active Substance: DOCETAXEL
     Route: 065
  3. DOCETAXEL [Suspect]
     Active Substance: DOCETAXEL
     Route: 065
  4. DOCETAXEL [Suspect]
     Active Substance: DOCETAXEL
  5. CLOPIDOGREL [Suspect]
     Active Substance: CLOPIDOGREL BISULFATE
     Indication: Antiplatelet therapy
     Dosage: 75 MILLIGRAM, QD
  6. CLOPIDOGREL [Suspect]
     Active Substance: CLOPIDOGREL BISULFATE
     Dosage: 75 MILLIGRAM, QD
     Route: 065
  7. CLOPIDOGREL [Suspect]
     Active Substance: CLOPIDOGREL BISULFATE
     Dosage: 75 MILLIGRAM, QD
     Route: 065
  8. CLOPIDOGREL [Suspect]
     Active Substance: CLOPIDOGREL BISULFATE
     Dosage: 75 MILLIGRAM, QD
  9. ASPIRIN LYSINE [Suspect]
     Active Substance: ASPIRIN LYSINE
     Indication: Antiplatelet therapy
  10. ASPIRIN LYSINE [Suspect]
     Active Substance: ASPIRIN LYSINE
     Route: 065
  11. ASPIRIN LYSINE [Suspect]
     Active Substance: ASPIRIN LYSINE
     Route: 065
  12. ASPIRIN LYSINE [Suspect]
     Active Substance: ASPIRIN LYSINE
  13. TINZAPARIN [Suspect]
     Active Substance: TINZAPARIN
     Indication: Anticoagulant therapy
     Dosage: DOSE-14000U , QD
  14. TINZAPARIN [Suspect]
     Active Substance: TINZAPARIN
     Dosage: DOSE-14000U , QD
     Route: 065
  15. TINZAPARIN [Suspect]
     Active Substance: TINZAPARIN
     Dosage: DOSE-14000U , QD
     Route: 065
  16. TINZAPARIN [Suspect]
     Active Substance: TINZAPARIN
     Dosage: DOSE-14000U , QD

REACTIONS (6)
  - Tooth socket haemorrhage [Recovering/Resolving]
  - Shock haemorrhagic [Recovering/Resolving]
  - Myelosuppression [Unknown]
  - Pneumonia aspiration [Recovering/Resolving]
  - Haematemesis [Unknown]
  - Epistaxis [Recovered/Resolved]
